FAERS Safety Report 4921538-4 (Version None)
Quarter: 2006Q1

REPORT INFORMATION
  Report Type: 
  Country: None (occurrence: None)
  Receive Date: 20060222
  Receipt Date: 20060222
  Transmission Date: 20060701
  Serious: Yes (Hospitalization)
  Sender: FDA-Public Use
  Company Number: None

PATIENT
  Age: 63 Year
  Sex: Male
  Weight: 114 kg

DRUGS (8)
  1. LISINOPRIL [Suspect]
     Indication: HYPERTENSION
     Dosage: SEE IMAGE
     Route: 048
     Dates: start: 20060203, end: 20060206
  2. LISINOPRIL [Suspect]
     Indication: HYPERTENSION
     Dosage: SEE IMAGE
     Route: 048
     Dates: start: 20060207
  3. DOCUSATE SODIUM [Concomitant]
  4. FLUOXETINE HCL [Concomitant]
  5. GLIPIZIDE [Concomitant]
  6. THERAPEUTIC MULTIVITAMINS [Concomitant]
  7. ROSIGLITIZONE [Concomitant]
  8. TERAZOSIN [Concomitant]

REACTIONS (1)
  - RENAL FAILURE ACUTE [None]
